FAERS Safety Report 5525359-3 (Version None)
Quarter: 2007Q4

REPORT INFORMATION
  Report Type: 
  Country: None (occurrence: None)
  Receive Date: 20071120
  Receipt Date: 20071102
  Transmission Date: 20080405
  Serious: Yes (Other)
  Sender: FDA-Public Use
  Company Number: 2007VX001879

PATIENT
  Age: 66 Year
  Sex: Female
  Weight: 56.246 kg

DRUGS (15)
  1. INTERFERON ALFACON-1 [Suspect]
     Indication: HEPATITIS C
     Dosage: 9 UG; QD; SC
     Route: 058
     Dates: start: 20070517
  2. RIBAVIRIN [Suspect]
     Indication: HEPATITIS C
     Dosage: 400 MG; BID; PO
     Route: 048
  3. LANTUS [Concomitant]
  4. LORATADINE [Concomitant]
  5. BENAZEPRIL HYDROCHLORIDE [Concomitant]
  6. PRILOSEC [Concomitant]
  7. ATENOLOL [Concomitant]
  8. ACYCLOVIR [Concomitant]
  9. QVAR 40 [Concomitant]
  10. ALBUTEROL [Concomitant]
  11. OXYBUTYNIN CHLORIDE [Concomitant]
  12. SYNTHROID [Concomitant]
  13. COZAAR [Concomitant]
  14. EPOGEN [Concomitant]
  15. ZETIA [Concomitant]

REACTIONS (7)
  - ALOPECIA [None]
  - ASTHMA [None]
  - DECREASED APPETITE [None]
  - FATIGUE [None]
  - RED BLOOD CELL COUNT DECREASED [None]
  - THYROID DISORDER [None]
  - WEIGHT DECREASED [None]
